FAERS Safety Report 6703425-4 (Version None)
Quarter: 2010Q2

REPORT INFORMATION
  Report Type: 
  Country: None (occurrence: None)
  Receive Date: 20100423
  Receipt Date: 20091216
  Transmission Date: 20101027
  Serious: No
  Sender: FDA-Public Use
  Company Number: ALL1-2009-03686

PATIENT
  Age: 19 Year
  Sex: Male
  Weight: 93 kg

DRUGS (4)
  1. VYVANSE [Suspect]
     Indication: ATTENTION DEFICIT/HYPERACTIVITY DISORDER
     Dosage: 40 MG, 1X/DAY:QD, ORAL
     Route: 048
     Dates: start: 20091027, end: 20091109
  2. VYVANSE [Suspect]
     Indication: ATTENTION DEFICIT/HYPERACTIVITY DISORDER
     Dosage: 40 MG, 1X/DAY:QD, ORAL
     Route: 048
     Dates: start: 20091110, end: 20091112
  3. VITAMINS NOS (VITAMINS NOS) [Concomitant]
  4. IBUPROFEN [Concomitant]

REACTIONS (9)
  - ABASIA [None]
  - ABDOMINAL DISCOMFORT [None]
  - DIZZINESS [None]
  - INSOMNIA [None]
  - NERVOUSNESS [None]
  - PALLOR [None]
  - PALPITATIONS [None]
  - PANIC ATTACK [None]
  - TREMOR [None]
